FAERS Safety Report 10676582 (Version 6)
Quarter: 2015Q2

REPORT INFORMATION
  Report Type: Spontaneous
  Country: US (occurrence: US)
  Receive Date: 20141226
  Receipt Date: 20150622
  Transmission Date: 20150821
  Serious: Yes (Congenital Anomaly, Other)
  Sender: FDA-Public Use
  Company Number: US-ELI_LILLY_AND_COMPANY-US201412008642

PATIENT

DRUGS (9)
  1. PROZAC [Suspect]
     Active Substance: FLUOXETINE HYDROCHLORIDE
     Indication: PRODUCT USED FOR UNKNOWN INDICATION
     Dosage: 10 MG, QD
     Route: 048
     Dates: start: 20030626, end: 20030715
  2. PROGESTERONE IN OIL [Concomitant]
     Dosage: UNK, UNKNOWN
     Route: 064
  3. PRENATAL                           /00231801/ [Concomitant]
     Route: 064
  4. HYDROCORTISONE                     /00028605/ [Concomitant]
     Route: 064
  5. CYTOTEC [Concomitant]
     Active Substance: MISOPROSTOL
     Route: 064
  6. PROZAC [Suspect]
     Active Substance: FLUOXETINE HYDROCHLORIDE
     Dosage: 30 MG, QD
     Route: 048
     Dates: start: 20031011
  7. KLONOPIN [Concomitant]
     Active Substance: CLONAZEPAM
     Route: 064
  8. PITOCIN [Concomitant]
     Active Substance: OXYTOCIN
     Route: 064
  9. PROZAC [Suspect]
     Active Substance: FLUOXETINE HYDROCHLORIDE
     Dosage: 20 MG, QD
     Route: 048
     Dates: start: 20030716, end: 20031010

REACTIONS (13)
  - Pneumothorax [Recovered/Resolved]
  - Tricuspid valve incompetence [Unknown]
  - Small for dates baby [Unknown]
  - Respiratory distress [Recovered/Resolved]
  - Tracheo-oesophageal fistula [Recovered/Resolved]
  - Oesophageal atresia [Recovered/Resolved]
  - Pleural effusion [Recovered/Resolved]
  - Atrial septal defect [Recovered/Resolved]
  - Gastrooesophageal reflux disease [Recovered/Resolved]
  - Mitral valve incompetence [Unknown]
  - Pulmonary valve incompetence [Unknown]
  - Oesophageal motility disorder [Unknown]
  - Foetal exposure during pregnancy [Recovered/Resolved]
